FAERS Safety Report 8529314 (Version 2)
Quarter: 2013Q3

REPORT INFORMATION
  Report Type: Spontaneous
  Country: US (occurrence: US)
  Receive Date: 20120425
  Receipt Date: 20130701
  Transmission Date: 20140515
  Serious: Yes (Hospitalization, Other)
  Sender: FDA-Public Use
  Company Number: US-BAYER-2012-038500

PATIENT
  Age: 31 Year
  Sex: Female

DRUGS (11)
  1. YAZ [Suspect]
     Dosage: UNK
     Dates: start: 1999, end: 200904
  2. YASMIN [Suspect]
     Dosage: UNK
     Dates: start: 1999, end: 200904
  3. OCELLA [Suspect]
     Dosage: UNK
     Dates: start: 1999, end: 200904
  4. XANAX [Concomitant]
     Dosage: 0.5MG EVERY 12 HOURS PRN
  5. ZMAX SUSPENSION [Concomitant]
  6. METFORMIN [Concomitant]
     Dosage: 500 MG, UNK
     Route: 048
  7. METHYLDOPA [Concomitant]
     Dosage: 250 MG, UNK
  8. FOSPHENYTOIN [Concomitant]
     Indication: CONVULSION
     Dosage: UNK
     Dates: start: 20090418
  9. PHENYTOIN [Concomitant]
     Indication: CONVULSION
  10. PROPOFOL [Concomitant]
     Indication: CONVULSION
  11. ATIVAN [Concomitant]
     Indication: CONVULSION

REACTIONS (9)
  - Cerebrovascular accident [None]
  - Intracranial venous sinus thrombosis [None]
  - Cerebral haemorrhage [None]
  - Injury [None]
  - Pain [None]
  - Emotional distress [None]
  - General physical health deterioration [None]
  - Anxiety [None]
  - Pain [None]
